FAERS Safety Report 5518843-X (Version None)
Quarter: 2007Q4

REPORT INFORMATION
  Report Type: 
  Country: None (occurrence: None)
  Receive Date: 20071113
  Receipt Date: 20071107
  Transmission Date: 20080405
  Serious: Yes (Other)
  Sender: FDA-Public Use
  Company Number: 2007SP022613

PATIENT
  Sex: Male
  Weight: 61 kg

DRUGS (7)
  1. TEMODAL [Suspect]
     Indication: OLIGODENDROGLIOMA
     Dosage: SEE IMAGE
     Dates: start: 20061108, end: 20061112
  2. TEMODAL [Suspect]
     Indication: OLIGODENDROGLIOMA
     Dosage: SEE IMAGE
     Dates: start: 20061206, end: 20061210
  3. TEMODAL [Suspect]
     Indication: OLIGODENDROGLIOMA
     Dosage: SEE IMAGE
     Dates: start: 20070103, end: 20070107
  4. TEMODAL [Suspect]
     Indication: OLIGODENDROGLIOMA
     Dosage: SEE IMAGE
     Dates: start: 20070131, end: 20070204
  5. TEMODAL [Suspect]
     Indication: OLIGODENDROGLIOMA
     Dosage: SEE IMAGE
     Dates: start: 20070228, end: 20070304
  6. TEMODAL [Suspect]
     Indication: OLIGODENDROGLIOMA
     Dosage: SEE IMAGE
     Dates: start: 20070502, end: 20070505
  7. ALEVIATION (CON.) [Concomitant]

REACTIONS (1)
  - TUMOUR HAEMORRHAGE [None]
